FAERS Safety Report 8501791-0 (Version None)
Quarter: 2012Q3

REPORT INFORMATION
  Report Type: 
  Country: None (occurrence: None)
  Receive Date: 20120705
  Receipt Date: 20120705
  Transmission Date: 20120928
  Serious: Yes (Life-Threatening, Other)
  Sender: FDA-Public Use
  Company Number: None

PATIENT
  Sex: Female
  Weight: 45 kg

DRUGS (1)
  1. VERAPAMIL [Suspect]
     Indication: PROPHYLAXIS
     Dosage: 1 TWO TIMES PER DAY BUCCAL
     Route: 002
     Dates: start: 19850101, end: 20120703

REACTIONS (6)
  - NEURITIS [None]
  - FATIGUE [None]
  - CONSTIPATION [None]
  - SYNCOPE [None]
  - DECREASED APPETITE [None]
  - ABDOMINAL PAIN UPPER [None]
